FAERS Safety Report 6149641-4 (Version None)
Quarter: 2009Q2

REPORT INFORMATION
  Report Type: 
  Country: None (occurrence: None)
  Receive Date: 20090409
  Receipt Date: 20090330
  Transmission Date: 20091009
  Serious: Yes (Other)
  Sender: FDA-Public Use
  Company Number: US-ALLERGAN-0904376US

PATIENT
  Sex: Male

DRUGS (2)
  1. BOTOX [Suspect]
     Indication: SKIN WRINKLING
     Dosage: UNK, SINGLE
     Route: 030
     Dates: start: 20090313, end: 20090313
  2. BLOOD PRESSURE MEDICATION [Concomitant]

REACTIONS (6)
  - DRUG TOXICITY [None]
  - EYELID OEDEMA [None]
  - FACIAL PARESIS [None]
  - HYPOAESTHESIA [None]
  - PARAESTHESIA [None]
  - VISION BLURRED [None]
